FAERS Safety Report 8041778-8 (Version None)
Quarter: 2012Q1

REPORT INFORMATION
  Report Type: 
  Country: None (occurrence: None)
  Receive Date: 20120112
  Receipt Date: 20120110
  Transmission Date: 20120608
  Serious: Yes (Other)
  Sender: FDA-Public Use
  Company Number: NZ-PFIZER INC-2012003285

PATIENT
  Age: 50 Year
  Sex: Female

DRUGS (3)
  1. METOPROLOL [Concomitant]
     Dosage: UNK
  2. ACETYLSALICYLIC ACID [Concomitant]
     Dosage: UNK
  3. VARENICLINE TARTRATE [Suspect]
     Indication: SMOKING CESSATION THERAPY

REACTIONS (1)
  - ANGINA UNSTABLE [None]
